FAERS Safety Report 4293117-6 (Version None)
Quarter: 2004Q1

REPORT INFORMATION
  Report Type: 
  Country: None (occurrence: None)
  Receive Date: 20040212
  Receipt Date: 20030331
  Transmission Date: 20041129
  Serious: No
  Sender: FDA-Public Use
  Company Number: US-GLAXOSMITHKLINE-A0404005A

PATIENT
  Age: 75 Year
  Sex: Female
  Weight: 83.2 kg

DRUGS (1)
  1. PAXIL [Suspect]
     Route: 048
     Dates: start: 20030312, end: 20030101

REACTIONS (3)
  - ADVERSE EVENT [None]
  - RASH [None]
  - SOMNOLENCE [None]
